FAERS Safety Report 9884234 (Version 1)
Quarter: 2014Q1

REPORT INFORMATION
  Report Type: Spontaneous
  Country: US (occurrence: US)
  Receive Date: 20140210
  Receipt Date: 20140210
  Transmission Date: 20141002
  Serious: No
  Sender: FDA-Public Use
  Company Number: US-ALLERGAN-1315574US

PATIENT
  Age: 41 Year
  Sex: Female

DRUGS (5)
  1. BOTOX COSMETIC [Suspect]
     Indication: SKIN WRINKLING
     Dosage: UNK, SINGLE
     Route: 030
     Dates: start: 20130924, end: 20130924
  2. BOTOX COSMETIC [Suspect]
     Indication: SKIN WRINKLING
  3. BOTOX COSMETIC [Suspect]
     Indication: SKIN WRINKLING
  4. BOTOX COSMETIC [Suspect]
     Indication: SKIN WRINKLING
  5. JUVEDERM XC [Suspect]
     Indication: SKIN WRINKLING
     Dosage: UNK, SINGLE
     Dates: start: 20130924, end: 20130924

REACTIONS (11)
  - Eye infection [Recovering/Resolving]
  - Eye swelling [Recovering/Resolving]
  - Eye disorder [Recovering/Resolving]
  - Eye irritation [Recovering/Resolving]
  - Eye pain [Recovering/Resolving]
  - Scleral hyperaemia [Recovering/Resolving]
  - Erythema [Recovering/Resolving]
  - Lacrimation increased [Recovering/Resolving]
  - Off label use [Unknown]
  - Rash [Recovering/Resolving]
  - Injection site bruising [Not Recovered/Not Resolved]
